FAERS Safety Report 6709008-4 (Version None)
Quarter: 2010Q2

REPORT INFORMATION
  Report Type: 
  Country: None (occurrence: None)
  Receive Date: 20100503
  Receipt Date: 20100503
  Transmission Date: 20101027
  Serious: Yes (Disabling)
  Sender: FDA-Public Use
  Company Number: None

PATIENT
  Age: 34 Year
  Sex: Female
  Weight: 109.3169 kg

DRUGS (3)
  1. SAVELLA [Suspect]
     Indication: DEPRESSION
     Dosage: 12.5 MG TWICE A DAY ORAL 047
     Route: 048
     Dates: start: 20100415
  2. SAVELLA [Suspect]
     Indication: FATIGUE
     Dosage: 12.5 MG TWICE A DAY ORAL 047
     Route: 048
     Dates: start: 20100415
  3. SAVELLA [Suspect]
     Indication: FIBROMYALGIA
     Dosage: 12.5 MG TWICE A DAY ORAL 047
     Route: 048
     Dates: start: 20100415

REACTIONS (13)
  - BIPOLAR DISORDER [None]
  - DEPRESSED MOOD [None]
  - DIZZINESS [None]
  - FEAR [None]
  - HYPERHIDROSIS [None]
  - IMPAIRED WORK ABILITY [None]
  - IRRITABILITY [None]
  - MOOD SWINGS [None]
  - MUSCLE SPASMS [None]
  - NAUSEA [None]
  - PRURITUS [None]
  - THINKING ABNORMAL [None]
  - VOMITING [None]
